FAERS Safety Report 5563666-9 (Version None)
Quarter: 2007Q4

REPORT INFORMATION
  Report Type: 
  Country: None (occurrence: None)
  Receive Date: 20071217
  Receipt Date: 20070904
  Transmission Date: 20080405
  Serious: No
  Sender: FDA-Public Use
  Company Number: US-ASTRAZENECA-2007UW18178

PATIENT
  Age: 17779 Day
  Sex: Male
  Weight: 94.5 kg

DRUGS (1)
  1. CRESTOR [Suspect]
     Route: 048
     Dates: start: 20070505

REACTIONS (1)
  - BLOOD TRIGLYCERIDES INCREASED [None]
